FAERS Safety Report 25533273 (Version 1)
Quarter: 2025Q3

REPORT INFORMATION
  Report Type: Report from Study
  Country: CH (occurrence: CH)
  Receive Date: 20250709
  Receipt Date: 20250709
  Transmission Date: 20251021
  Serious: Yes (Death, Other)
  Sender: TEVA
  Company Number: CH-TEVA-VS-3348852

PATIENT

DRUGS (3)
  1. TEMOZOLOMIDE [Suspect]
     Active Substance: TEMOZOLOMIDE
     Indication: Metastatic neoplasm
     Route: 065
  2. SUNITINIB [Suspect]
     Active Substance: SUNITINIB
     Indication: Metastatic neoplasm
     Route: 065
  3. SUNITINIB [Suspect]
     Active Substance: SUNITINIB
     Indication: Metastatic neoplasm
     Route: 065

REACTIONS (4)
  - Drug ineffective [Fatal]
  - Fatigue [Unknown]
  - Thrombocytopenia [Unknown]
  - C-reactive protein increased [Unknown]
